FAERS Safety Report 5103419-9 (Version None)
Quarter: 2006Q3

REPORT INFORMATION
  Report Type: 
  Country: None (occurrence: None)
  Receive Date: 20060913
  Receipt Date: 20060824
  Transmission Date: 20061208
  Serious: Yes (Other)
  Sender: FDA-Public Use
  Company Number: HU-BRISTOL-MYERS SQUIBB COMPANY-13489687

PATIENT
  Age: 74 Year
  Sex: Female
  Weight: 67 kg

DRUGS (6)
  1. COAPROVEL [Suspect]
     Indication: HYPERTONIA
     Dosage: DOSING WAS 150 MG/ 12.5 MG.
     Route: 048
     Dates: start: 20060821, end: 20060821
  2. VERAPAMIL [Concomitant]
     Route: 048
  3. FUROSEMIDE [Concomitant]
  4. FURON [Concomitant]
     Route: 048
  5. THEOPHYLLINE [Concomitant]
     Dosage: DURATION OF THERAPY 3-4 YEARS
     Route: 048
  6. LOKREN [Concomitant]
     Route: 048

REACTIONS (4)
  - ACTIVITIES OF DAILY LIVING IMPAIRED [None]
  - ASPHYXIA [None]
  - CHEST PAIN [None]
  - ENURESIS [None]
